FAERS Safety Report 7987461-6 (Version None)
Quarter: 2011Q4

REPORT INFORMATION
  Report Type: 
  Country: None (occurrence: None)
  Receive Date: 20111216
  Receipt Date: 20111205
  Transmission Date: 20120403
  Serious: Yes (Hospitalization, Other)
  Sender: FDA-Public Use
  Company Number: PHHY2011FR107568

PATIENT
  Sex: Male

DRUGS (2)
  1. AFINITOR [Suspect]
     Indication: RENAL CELL CARCINOMA
     Dosage: 10 MG, DAILY
     Dates: start: 20110901
  2. AFINITOR [Suspect]
     Dosage: 10 MG, DAILY

REACTIONS (6)
  - HYPERAESTHESIA [None]
  - PYREXIA [None]
  - ARTHRITIS [None]
  - EFFUSION [None]
  - CRYSTAL ARTHROPATHY [None]
  - TUBERCULOSIS [None]
